FAERS Safety Report 24783664 (Version 1)
Quarter: 2024Q4

REPORT INFORMATION
  Report Type: Spontaneous
  Country: GB (occurrence: GB)
  Receive Date: 20241227
  Receipt Date: 20241227
  Transmission Date: 20250115
  Serious: Yes (Other)
  Sender: ALEXION PHARMACEUTICALS
  Company Number: GB-MHRA-EMIS-12001-802c23ac-3e09-4be7-a8b2-0afbf7f7d585

PATIENT
  Age: 74 Year
  Weight: 64 kg

DRUGS (6)
  1. DAPAGLIFLOZIN [Suspect]
     Active Substance: DAPAGLIFLOZIN
     Dosage: ONE TO BE TAKEN DAILY
     Route: 065
  2. DAPAGLIFLOZIN [Suspect]
     Active Substance: DAPAGLIFLOZIN
     Dosage: ONE TO BE TAKEN DAILY
     Route: 065
  3. DAPAGLIFLOZIN [Suspect]
     Active Substance: DAPAGLIFLOZIN
     Dosage: ONE TO BE TAKEN DAILY
     Route: 065
  4. DAPAGLIFLOZIN [Suspect]
     Active Substance: DAPAGLIFLOZIN
     Dosage: ONE TO BE TAKEN DAILY
     Route: 065
  5. SPIKEVAX [Suspect]
     Active Substance: CX-046684
     Dosage: 0.5 ML INTRAMUSCULAR
     Route: 030
  6. SPIKEVAX [Suspect]
     Active Substance: CX-046684
     Dosage: 0.5 ML INTRAMUSCULAR

REACTIONS (1)
  - Muscular weakness [Unknown]
